FAERS Safety Report 12228293 (Version 1)
Quarter: 2016Q1

REPORT INFORMATION
  Report Type: Spontaneous
  Country: US (occurrence: None)
  Receive Date: 20160330
  Receipt Date: 20160330
  Transmission Date: 20160526
  Serious: No
  Sender: FDA-Public Use
  Company Number: None

PATIENT
  Age: 96 Year
  Sex: Male
  Weight: 72.58 kg

DRUGS (8)
  1. MEMANTINE. [Concomitant]
     Active Substance: MEMANTINE
  2. SYNTHROID [Concomitant]
     Active Substance: LEVOTHYROXINE SODIUM
  3. STOOL SOFTNER [Concomitant]
     Active Substance: DOCUSATE SODIUM
  4. COUMADIN [Concomitant]
     Active Substance: WARFARIN SODIUM
  5. CARVEDILOL 3.125 MG TABLET GENERIC FOR COREG [Suspect]
     Active Substance: CARVEDILOL
     Indication: HYPERTENSION
     Route: 048
     Dates: start: 20160210, end: 20160316
  6. CALCIUM [Concomitant]
     Active Substance: CALCIUM
  7. VITAMIN C [Concomitant]
     Active Substance: ASCORBIC ACID
  8. CENTRUM SILVER [Concomitant]
     Active Substance: MINERALS\VITAMINS

REACTIONS (4)
  - Dyspnoea [None]
  - Fatigue [None]
  - Somnolence [None]
  - Influenza like illness [None]

NARRATIVE: CASE EVENT DATE: 20160214
